FAERS Safety Report 6154093-4 (Version None)
Quarter: 2009Q2

REPORT INFORMATION
  Report Type: 
  Country: None (occurrence: None)
  Receive Date: 20090414
  Receipt Date: 20090403
  Transmission Date: 20091009
  Serious: Yes (Other)
  Sender: FDA-Public Use
  Company Number: PHHY2009CA12930

PATIENT
  Sex: Male

DRUGS (1)
  1. VOLTAREN [Suspect]
     Indication: ACCIDENT AT WORK
     Dosage: 5 DRP, QID
     Route: 061
     Dates: start: 20090401, end: 20090402

REACTIONS (3)
  - OVERDOSE [None]
  - VISION BLURRED [None]
  - VISUAL ACUITY REDUCED [None]
